FAERS Safety Report 9743241 (Version 1)
Quarter: 2013Q4

REPORT INFORMATION
  Report Type: Spontaneous
  Country: US (occurrence: US)
  Receive Date: 20131210
  Receipt Date: 20131210
  Transmission Date: 20140711
  Serious: No
  Sender: FDA-Public Use
  Company Number: US-GILEAD-2009-0025084

PATIENT
  Sex: Female
  Weight: 76.66 kg

DRUGS (10)
  1. LETAIRIS [Suspect]
     Indication: PULMONARY ARTERIAL HYPERTENSION
     Route: 048
     Dates: start: 20090911
  2. ATENOLOL [Concomitant]
  3. LASIX [Concomitant]
  4. SYNTHROID [Concomitant]
  5. LIPITOR [Concomitant]
  6. SYMBICORT [Concomitant]
  7. POTASSIUM CHLORIDE [Concomitant]
  8. ASPIRIN [Concomitant]
  9. NITROGLYCERIN [Concomitant]
  10. VITAMIN D [Concomitant]

REACTIONS (3)
  - Local swelling [Unknown]
  - Skin tightness [Unknown]
  - Erythema [Unknown]
